FAERS Safety Report 5833128-X (Version None)
Quarter: 2008Q3

REPORT INFORMATION
  Report Type: 
  Country: None (occurrence: None)
  Receive Date: 20080731
  Receipt Date: 20080716
  Transmission Date: 20090109
  Serious: Yes (Hospitalization, Other)
  Sender: FDA-Public Use
  Company Number: 2008AL008603

PATIENT
  Age: 61 Year
  Sex: Male
  Weight: 86.1834 kg

DRUGS (2)
  1. DIGOXIN [Suspect]
     Indication: ATRIAL FIBRILLATION
     Dosage: 0.125MG, DAILY, PO
     Route: 048
     Dates: start: 20071101, end: 20080501
  2. DIGOXIN [Suspect]
     Indication: BLOOD PRESSURE ABNORMAL
     Dosage: 0.125MG, DAILY, PO
     Route: 048
     Dates: start: 20071101, end: 20080501

REACTIONS (3)
  - BLOOD PRESSURE ABNORMAL [None]
  - DYSPNOEA [None]
  - HEART RATE ABNORMAL [None]
